FAERS Safety Report 8461916 (Version 2)
Quarter: 2013Q1

REPORT INFORMATION
  Report Type: Spontaneous
  Country: MX (occurrence: MX)
  Receive Date: 20120315
  Receipt Date: 20130201
  Transmission Date: 20140127
  Serious: No
  Sender: FDA-Public Use
  Company Number: PHHY2012MX022491

PATIENT
  Age: 61 Year
  Sex: Female

DRUGS (2)
  1. EXFORGE [Suspect]
     Indication: HYPERTENSION
     Dosage: 1 DF (160/5 MG), DAILY
     Dates: start: 20111204
  2. GLIMETAL [Concomitant]
     Indication: DIABETES MELLITUS
     Dosage: 1 DF, DAILY
     Dates: start: 2010

REACTIONS (5)
  - Blood glucose decreased [Recovered/Resolved]
  - Feeling cold [Recovered/Resolved]
  - Cold sweat [Recovered/Resolved]
  - Feeling drunk [Recovered/Resolved]
  - Pain in extremity [Recovered/Resolved]
